FAERS Safety Report 9056754 (Version 1)
Quarter: 2013Q1

REPORT INFORMATION
  Report Type: Report from Study
  Country: JP (occurrence: JP)
  Receive Date: 20130201
  Receipt Date: 20130201
  Transmission Date: 20140127
  Serious: Yes (Hospitalization, Other)
  Sender: FDA-Public Use
  Company Number: JP-VERTEX PHARMACEUTICALS INC.-AE-2012-004346

PATIENT
  Age: 56 Year
  Sex: Female

DRUGS (18)
  1. VX-950 (TELAPREVIR) [Suspect]
     Indication: CHRONIC HEPATITIS C
     Dosage: 2250 MG, QD
     Route: 048
     Dates: start: 20120125, end: 20120227
  2. VX-950 (TELAPREVIR) [Suspect]
     Dosage: 1500 MG, QD
     Route: 048
     Dates: start: 20120228, end: 20120229
  3. VX-950 (TELAPREVIR) [Suspect]
     Dosage: 750 MG, QD
     Route: 048
     Dates: start: 20120301, end: 20120306
  4. PEGINTERFERON ALFA-2B [Suspect]
     Indication: CHRONIC HEPATITIS C
     Dosage: 1.4 ?G/KG, QW
     Route: 058
     Dates: start: 20120125, end: 20120312
  5. PEGINTERFERON ALFA-2B [Suspect]
     Dosage: 0.97 ?G/KG, QW
     Route: 058
     Dates: start: 20120313, end: 20120313
  6. PEGINTERFERON ALFA-2B [Suspect]
     Dosage: 1.5 ?G/KG, QW
     Route: 058
     Dates: start: 20120321
  7. PEGINTERFERON ALFA-2B [Suspect]
     Dosage: 1.4 ?G/KG, QW
     Route: 058
     Dates: end: 20120619
  8. PEGINTERFERON ALFA-2B [Suspect]
     Dosage: 0.97 ?G/KG, QW
     Route: 058
     Dates: start: 20120626, end: 20120710
  9. RIBAVIRIN [Suspect]
     Indication: CHRONIC HEPATITIS C
     Dosage: 600 MG, QD
     Route: 048
     Dates: start: 20120125, end: 20120227
  10. RIBAVIRIN [Suspect]
     Dosage: 400 MG, QD
     Route: 048
     Dates: start: 20120228, end: 20120311
  11. RIBAVIRIN [Suspect]
     Dosage: 200 MG, QD
     Route: 048
     Dates: start: 20120312, end: 20120402
  12. RIBAVIRIN [Suspect]
     Dosage: 400 MG, QD
     Route: 048
     Dates: start: 20120403, end: 20120416
  13. RIBAVIRIN [Suspect]
     Dosage: 600 MG, QD
     Route: 048
     Dates: start: 20120417, end: 20120710
  14. GASMOTIN [Concomitant]
     Dosage: 15 MG, QD
     Route: 048
     Dates: start: 20120214, end: 20120626
  15. PURSENNID [Concomitant]
     Route: 048
     Dates: start: 20120228
  16. TAKEPRON [Concomitant]
     Dosage: 15 MG, QD
     Route: 048
     Dates: end: 20120717
  17. ZETIA [Concomitant]
     Route: 048
     Dates: start: 20120125, end: 20120306
  18. MAGMITT [Concomitant]
     Dosage: 990 MG, PRN
     Route: 048

REACTIONS (2)
  - Anaemia [Recovered/Resolved]
  - Neutrophil count decreased [Recovered/Resolved]
